FAERS Safety Report 19310268 (Version 1)
Quarter: 2021Q2

REPORT INFORMATION
  Report Type: Spontaneous
  Country: FR (occurrence: FR)
  Receive Date: 20210526
  Receipt Date: 20210526
  Transmission Date: 20210717
  Serious: Yes (Other)
  Sender: FDA-Public Use
  Company Number: FR-PFIZER INC-2021544503

PATIENT
  Age: 70 Year
  Sex: Female
  Weight: 57 kg

DRUGS (6)
  1. ATORVASTATIN [Concomitant]
     Active Substance: ATORVASTATIN
     Dosage: UNK
     Dates: start: 19870815
  2. CISATRACURIUM PFIZER [Suspect]
     Active Substance: CISATRACURIUM BESYLATE
     Dosage: 1 DF, SINGLE
     Route: 023
     Dates: start: 20210426, end: 20210426
  3. CLIMASTON [DYDROGESTERONE;ESTRADIOL] [Concomitant]
     Active Substance: DYDROGESTERONE\ESTRADIOL
     Dosage: UNK
     Dates: start: 19870815
  4. KARDEGIC [Concomitant]
     Active Substance: ASPIRIN DL-LYSINE
     Dosage: UNK
     Dates: start: 19870815
  5. ZYPREXA [Concomitant]
     Active Substance: OLANZAPINE
     Dosage: 5 MG, 1X/DAY
  6. RUBOZINC [Concomitant]
     Active Substance: ZINC GLUCONATE
     Dosage: UNK
     Dates: start: 19870815

REACTIONS (3)
  - Malaise [Recovered/Resolved]
  - Urinary incontinence [Recovered/Resolved]
  - Peripheral coldness [Recovered/Resolved]

NARRATIVE: CASE EVENT DATE: 20210427
